FAERS Safety Report 13124955 (Version 1)
Quarter: 2017Q1

REPORT INFORMATION
  Report Type: Spontaneous
  Country: US (occurrence: US)
  Receive Date: 20170118
  Receipt Date: 20170118
  Transmission Date: 20170428
  Serious: No
  Sender: FDA-Public Use
  Company Number: US-BAYER-2017-009503

PATIENT
  Age: 15 Year
  Sex: Male

DRUGS (1)
  1. ALEVE [Suspect]
     Active Substance: NAPROXEN SODIUM
     Indication: ANALGESIC THERAPY
     Dosage: 10-12
     Route: 048
     Dates: end: 20170117

REACTIONS (2)
  - Overdose [Recovered/Resolved]
  - Failure of child resistant mechanism for pharmaceutical product [None]

NARRATIVE: CASE EVENT DATE: 20170117
